FAERS Safety Report 4870926-3 (Version None)
Quarter: 2005Q4

REPORT INFORMATION
  Report Type: 
  Country: None (occurrence: None)
  Receive Date: 20051228
  Receipt Date: 20051205
  Transmission Date: 20060501
  Serious: Yes (Hospitalization, Disabling)
  Sender: FDA-Public Use
  Company Number: SUS1-2005-00943

PATIENT
  Age: 63 Year
  Sex: Male

DRUGS (8)
  1. PENTASA [Suspect]
     Indication: CROHN'S DISEASE
     Dosage: 1000 MG, 3X/DAY: TID,  ORAL
     Route: 048
     Dates: end: 20051001
  2. LOPERAMIDE HYDROCHLORIDE [Concomitant]
  3. SODIUM CITRATE [Concomitant]
  4. TAMSULOSIN HYDROCHLORIDE (TAMSULOSIN HYDROCHLORIDE) [Concomitant]
  5. FAMOTIDINE [Concomitant]
  6. OPIUM TINCTURE (PAPAVER SOMNIFERUM TINCTURE) [Concomitant]
  7. SODIUM ALGINATE (SODIUM ALGINATE) [Concomitant]
  8. COLESTILAN (COLESTILAN) [Concomitant]

REACTIONS (4)
  - BRONCHOALVEOLAR LAVAGE ABNORMAL [None]
  - INTERSTITIAL LUNG DISEASE [None]
  - NEUROPATHY PERIPHERAL [None]
  - PNEUMONIA [None]
